FAERS Safety Report 17927554 (Version 5)
Quarter: 2020Q3

REPORT INFORMATION
  Report Type: Spontaneous
  Country: MY (occurrence: MY)
  Receive Date: 20200622
  Receipt Date: 20200703
  Transmission Date: 20201103
  Serious: Yes (Hospitalization)
  Sender: FDA-Public Use
  Company Number: MY-ABBVIE-20K-101-3450837-00

PATIENT
  Age: 5 Year
  Sex: Male

DRUGS (5)
  1. FLUDARABINE [Suspect]
     Active Substance: FLUDARABINE PHOSPHATE
     Indication: JUVENILE CHRONIC MYELOMONOCYTIC LEUKAEMIA
     Route: 050
     Dates: start: 20200601, end: 20200605
  2. IDARUBICIN [Suspect]
     Active Substance: IDARUBICIN
     Route: 050
     Dates: start: 20200605, end: 20200605
  3. VENETOCLAX. [Suspect]
     Active Substance: VENETOCLAX
     Indication: ACUTE MYELOID LEUKAEMIA
     Route: 048
     Dates: start: 20200601, end: 20200614
  4. CYTARABINE. [Suspect]
     Active Substance: CYTARABINE
     Indication: JUVENILE CHRONIC MYELOMONOCYTIC LEUKAEMIA
     Route: 050
     Dates: start: 20200601, end: 20200605
  5. IDARUBICIN [Suspect]
     Active Substance: IDARUBICIN
     Indication: JUVENILE CHRONIC MYELOMONOCYTIC LEUKAEMIA
     Route: 050
     Dates: start: 20200603, end: 20200604

REACTIONS (4)
  - Epistaxis [Recovered/Resolved]
  - Off label use [Recovered/Resolved]
  - Device related sepsis [Recovered/Resolved]
  - Febrile neutropenia [Recovered/Resolved]

NARRATIVE: CASE EVENT DATE: 20200601
